FAERS Safety Report 19188678 (Version 2)
Quarter: 2021Q2

REPORT INFORMATION
  Report Type: Spontaneous
  Country: JP (occurrence: JP)
  Receive Date: 20210428
  Receipt Date: 20210526
  Transmission Date: 20210717
  Serious: Yes (Other)
  Sender: FDA-Public Use
  Company Number: NVSJ2021JP006016

PATIENT
  Age: 48 Year
  Sex: Female
  Weight: 51.9 kg

DRUGS (1)
  1. ZOLEDRONIC ACID FOR I.V. INFUSION [Suspect]
     Active Substance: ZOLEDRONIC ACID
     Indication: HYPERCALCAEMIA
     Dosage: 4 MG
     Route: 042

REACTIONS (3)
  - Shock [Unknown]
  - Pyrexia [Unknown]
  - Adrenocortical insufficiency acute [Unknown]
